FAERS Safety Report 7755881-0 (Version None)
Quarter: 2011Q3

REPORT INFORMATION
  Report Type: 
  Country: None (occurrence: None)
  Receive Date: 20110916
  Receipt Date: 20100116
  Transmission Date: 20111222
  Serious: Yes (Death, Other)
  Sender: FDA-Public Use
  Company Number: US-BAYER-201011343NA

PATIENT
  Age: 78 Year
  Sex: Male
  Weight: 79 kg

DRUGS (28)
  1. ACTOS [Concomitant]
     Dosage: 30 MG, QD
     Route: 048
     Dates: start: 20050110
  2. ATENOLOL [Concomitant]
     Dosage: 25 MG, QD
     Route: 048
     Dates: start: 20050110
  3. PROTAMINE [Concomitant]
     Dosage: UNK
     Route: 042
     Dates: start: 20050117, end: 20050117
  4. THIOPENTAL SODIUM [Concomitant]
     Dosage: 400 MG, UNK
     Route: 042
     Dates: start: 20050117, end: 20050117
  5. TRASYLOL [Suspect]
     Indication: COX-MAZE PROCEDURE
  6. DIURIL [Concomitant]
     Dosage: 25 MG, QD
     Route: 048
     Dates: start: 20050110
  7. FOSINOPRIL SODIUM [Concomitant]
     Dosage: 20 MG, QD
     Route: 048
  8. NOVOLIN [INSULIN] [Concomitant]
     Dosage: 30 U, QD, IN THE MORNING
     Route: 058
  9. NITROGLYCERIN [Concomitant]
     Dosage: 1 INCH EVERY 6 HOURS; APPLY TO CHEST WALL
     Route: 061
     Dates: start: 20050110
  10. NITROGLYCERIN [Concomitant]
     Dosage: 0.4 MG, PRN
     Route: 060
     Dates: start: 20050110
  11. INSULIN [Concomitant]
     Dosage: UNK
     Route: 042
     Dates: start: 20050117
  12. ACETYLSALICYLIC ACID SRT [Concomitant]
     Dosage: 325 MG, QD
     Route: 048
  13. ATENOLOL [Concomitant]
     Dosage: 25 MG; 1/2 TABLET TID
     Route: 048
  14. ISOVUE-128 [Concomitant]
     Dosage: 80 ML, UNK
     Route: 042
     Dates: start: 20050113, end: 20050113
  15. DOPAMINE HCL [Concomitant]
     Dosage: UNK
     Route: 042
     Dates: start: 20050117
  16. NORCURON [Concomitant]
     Dosage: UNK
     Route: 042
     Dates: start: 20050117, end: 20050117
  17. VERSED [Concomitant]
     Dosage: UNK
     Route: 042
     Dates: start: 20050117, end: 20050117
  18. BETHANECHOL [Concomitant]
     Dosage: 25 MG, QID
     Route: 048
  19. ISOSORBIDE DINITRATE [Concomitant]
     Dosage: 10 MG, TID
     Route: 048
     Dates: end: 20050110
  20. CORDARONE [Concomitant]
     Dosage: 150MG/3ML
     Route: 042
     Dates: start: 20050117
  21. DARVOCET [Concomitant]
  22. HUMULIN [INSULIN HUMAN] [Concomitant]
     Dosage: SLIDING SCALE
     Route: 058
     Dates: start: 20050110
  23. FENTANYL [Concomitant]
     Dosage: UNK
     Route: 042
     Dates: start: 20050117, end: 20050117
  24. HEPARIN [Concomitant]
     Dosage: 17000 U, UNK
     Route: 042
     Dates: start: 20050117, end: 20050117
  25. TRASYLOL [Suspect]
     Indication: CORONARY ARTERY BYPASS
     Dosage: 1ML INITIAL TEST DOSE, 100ML PUMP PRIME DOSE, THEN 25ML/HR
     Route: 042
     Dates: start: 20050117, end: 20050117
  26. MUCOMYST [Concomitant]
     Dosage: 600 MG, BID
     Route: 048
     Dates: start: 20050114
  27. SIMVASTATIN [Concomitant]
     Dosage: 40 MG, QD
     Route: 048
  28. ANCEF [Concomitant]
     Dosage: 1 G, UNK
     Route: 042
     Dates: start: 20050117, end: 20050117

REACTIONS (14)
  - UNEVALUABLE EVENT [None]
  - DEPRESSION [None]
  - ANHEDONIA [None]
  - RENAL FAILURE [None]
  - ORGAN FAILURE [None]
  - CARDIAC DISORDER [None]
  - ANXIETY [None]
  - PAIN [None]
  - DEATH [None]
  - RENAL INJURY [None]
  - FEAR [None]
  - INJURY [None]
  - RENAL IMPAIRMENT [None]
  - CEREBROVASCULAR ACCIDENT [None]
